FAERS Safety Report 10721856 (Version 1)
Quarter: 2015Q1

REPORT INFORMATION
  Report Type: Report from Study
  Country: NL (occurrence: NL)
  Receive Date: 20150119
  Receipt Date: 20150119
  Transmission Date: 20150721
  Serious: Yes (Hospitalization)
  Sender: FDA-Public Use
  Company Number: NL-BAXTER-2015BAX001608

PATIENT
  Sex: Male

DRUGS (2)
  1. KIOVIG [Suspect]
     Active Substance: HUMAN IMMUNOGLOBULIN G
     Indication: MYELOFIBROSIS
     Route: 042
     Dates: start: 20141016
  2. KIOVIG [Suspect]
     Active Substance: HUMAN IMMUNOGLOBULIN G
     Indication: OFF LABEL USE

REACTIONS (2)
  - Sense of oppression [Unknown]
  - Respiratory tract infection [Unknown]
